FAERS Safety Report 5655086-3 (Version None)
Quarter: 2008Q1

REPORT INFORMATION
  Report Type: 
  Country: None (occurrence: None)
  Receive Date: 20080307
  Receipt Date: 20071130
  Transmission Date: 20080703
  Serious: No
  Sender: FDA-Public Use
  Company Number: A0696764A

PATIENT
  Age: 83 Year
  Sex: Male

DRUGS (3)
  1. REQUIP [Suspect]
     Indication: PARKINSON'S DISEASE
     Dosage: .25MG PER DAY
     Route: 048
  2. LOTENSIN [Concomitant]
  3. LORAZEPAM [Concomitant]

REACTIONS (3)
  - RASH [None]
  - SWELLING [None]
  - THERAPEUTIC RESPONSE DECREASED [None]
